FAERS Safety Report 5702438-9 (Version None)
Quarter: 2008Q2

REPORT INFORMATION
  Report Type: 
  Country: None (occurrence: None)
  Receive Date: 20080408
  Receipt Date: 20080327
  Transmission Date: 20081010
  Serious: Yes (Hospitalization)
  Sender: FDA-Public Use
  Company Number: 100#08#2008-01798

PATIENT
  Age: 10 Year
  Sex: Female

DRUGS (1)
  1. CARBAMAZEPINE (CARBAMAZEPINE) [Suspect]
     Indication: COMPLEX PARTIAL SEIZURES
     Dosage: INCREASED TO 600 MG TWICE DAILY

REACTIONS (8)
  - DRUG LEVEL INCREASED [None]
  - DRUG RASH WITH EOSINOPHILIA AND SYSTEMIC SYMPTOMS [None]
  - ELECTROENCEPHALOGRAM ABNORMAL [None]
  - HEPATIC FAILURE [None]
  - HEPATOMEGALY [None]
  - HUMAN HERPES VIRUS 6 SEROLOGY POSITIVE [None]
  - SOMNOLENCE [None]
  - SPLENOMEGALY [None]
